FAERS Safety Report 23395555 (Version 3)
Quarter: 2024Q2

REPORT INFORMATION
  Report Type: Spontaneous
  Country: US (occurrence: US)
  Receive Date: 20240112
  Receipt Date: 20240429
  Transmission Date: 20240716
  Serious: Yes (Death, Other)
  Sender: FDA-Public Use
  Company Number: US-CHIESI-2023CHF05484

PATIENT
  Age: 51 Year
  Sex: Female
  Weight: 49.89 kg

DRUGS (11)
  1. FERRIPROX [Suspect]
     Active Substance: DEFERIPRONE
     Indication: Sickle cell anaemia
     Dosage: 1000 MILLIGRAM, BID
     Route: 048
     Dates: start: 20230909, end: 20230926
  2. FERRIPROX [Suspect]
     Active Substance: DEFERIPRONE
     Indication: Anaemia
  3. FERRIPROX [Suspect]
     Active Substance: DEFERIPRONE
     Indication: Haemochromatosis
  4. FERRIPROX [Suspect]
     Active Substance: DEFERIPRONE
     Indication: Haemochromatosis
  5. FERRIPROX [Suspect]
     Active Substance: DEFERIPRONE
     Indication: Red blood cell transfusion
  6. HYDROXYUREA [Suspect]
     Active Substance: HYDROXYUREA
     Indication: Sickle cell disease
     Dosage: 500 MILLIGRAM, QD
     Route: 065
     Dates: start: 20230817, end: 20231003
  7. DIGOXIN [Concomitant]
     Active Substance: DIGOXIN
     Indication: Atrial fibrillation
     Dosage: 0.125 MILLIGRAM, QOD
     Dates: start: 20151101, end: 20231023
  8. VOXELOTOR [Concomitant]
     Active Substance: VOXELOTOR
     Indication: Sickle cell anaemia
     Dosage: 1500 MILLIGRAM, QD
     Dates: start: 20200727, end: 20231023
  9. ARANESP [Concomitant]
     Active Substance: DARBEPOETIN ALFA
     Indication: Erythropoiesis abnormal
     Dosage: 150 MILLIGRAM, Q.O.WK.
     Dates: start: 20211021, end: 20231023
  10. SILDENAFIL [Concomitant]
     Active Substance: SILDENAFIL
     Indication: Pulmonary hypertension
     Dosage: 20 MILLIGRAM, TID
     Dates: start: 20220623, end: 20231023
  11. MACITENTAN [Concomitant]
     Active Substance: MACITENTAN
     Indication: Pulmonary hypertension
     Dosage: 10 MILLIGRAM, QD
     Dates: start: 20221213, end: 20231023

REACTIONS (5)
  - Death [Fatal]
  - Deep vein thrombosis [Unknown]
  - Thrombocytopenia [Unknown]
  - Neutropenia [Recovered/Resolved]
  - Off label use [Recovered/Resolved]

NARRATIVE: CASE EVENT DATE: 20230909
